FAERS Safety Report 20869305 (Version 1)
Quarter: 2022Q2

REPORT INFORMATION
  Report Type: Spontaneous
  Country: US (occurrence: US)
  Receive Date: 20220524
  Receipt Date: 20220524
  Transmission Date: 20220720
  Serious: No
  Sender: FDA-Public Use
  Company Number: US-GILEAD-2022-0582692

PATIENT
  Age: 77 Year
  Sex: Male

DRUGS (4)
  1. VEKLURY [Interacting]
     Active Substance: REMDESIVIR
     Indication: COVID-19
     Dosage: UNK
     Route: 065
  2. IMBRUVICA [Interacting]
     Active Substance: IBRUTINIB
     Indication: Lymphocytic leukaemia
     Dosage: 280 MG, QD
     Route: 048
     Dates: start: 2019, end: 202202
  3. IMBRUVICA [Interacting]
     Active Substance: IBRUTINIB
     Dosage: 280 MG, QD
     Route: 048
     Dates: start: 2022
  4. MODERNA COVID-19 VACCINE [Interacting]
     Active Substance: ELASOMERAN
     Indication: COVID-19 immunisation
     Dosage: 3 DOSES
     Route: 030

REACTIONS (3)
  - COVID-19 [Recovered/Resolved]
  - Influenza like illness [Recovered/Resolved]
  - Drug interaction [Recovered/Resolved]

NARRATIVE: CASE EVENT DATE: 20220201
